FAERS Safety Report 7502023-2 (Version None)
Quarter: 2011Q2

REPORT INFORMATION
  Report Type: 
  Country: None (occurrence: None)
  Receive Date: 20110523
  Receipt Date: 20110523
  Transmission Date: 20111010
  Serious: Yes (Disabling)
  Sender: FDA-Public Use
  Company Number: None

PATIENT
  Sex: Female
  Weight: 49.4421 kg

DRUGS (1)
  1. ZICAM COLD REMEDY-NASAL GEL HOMEOPATHIC MATRIXX [Suspect]
     Indication: NASOPHARYNGITIS
     Dosage: 7 DAYS

REACTIONS (1)
  - ANOSMIA [None]
